FAERS Safety Report 23836427 (Version 2)
Quarter: 2024Q2

REPORT INFORMATION
  Report Type: Spontaneous
  Country: AR (occurrence: AR)
  Receive Date: 20240509
  Receipt Date: 20240626
  Transmission Date: 20240715
  Serious: Yes (Hospitalization)
  Sender: FDA-Public Use
  Company Number: AR-PFIZER INC-202400101778

PATIENT
  Age: 49 Year
  Sex: Female

DRUGS (1)
  1. SOMAVERT [Suspect]
     Active Substance: PEGVISOMANT
     Indication: Acromegaly
     Dosage: 15 MG
     Dates: start: 20220922, end: 20240318

REACTIONS (1)
  - Inflammation [Unknown]

NARRATIVE: CASE EVENT DATE: 20240318
